FAERS Safety Report 25483988 (Version 1)
Quarter: 2025Q2

REPORT INFORMATION
  Report Type: Spontaneous
  Country: TW (occurrence: TW)
  Receive Date: 20250626
  Receipt Date: 20250626
  Transmission Date: 20250717
  Serious: Yes (Other)
  Sender: AMGEN
  Company Number: TW-AMGEN-TWNSP2025122335

PATIENT
  Sex: Male

DRUGS (1)
  1. PROLIA [Suspect]
     Active Substance: DENOSUMAB
     Indication: Fracture
     Dosage: 60 MILLIGRAM, Q6WK
     Route: 058

REACTIONS (2)
  - Prostatic disorder [Unknown]
  - Off label use [Unknown]
